FAERS Safety Report 6900986-7 (Version None)
Quarter: 2010Q3

REPORT INFORMATION
  Report Type: 
  Country: None (occurrence: None)
  Receive Date: 20100803
  Receipt Date: 20100729
  Transmission Date: 20110219
  Serious: Yes (Hospitalization)
  Sender: FDA-Public Use
  Company Number: B0667573A

PATIENT
  Sex: Female

DRUGS (7)
  1. ARIXTRA [Suspect]
     Indication: THROMBOPHLEBITIS
     Dosage: 7.5MG PER DAY
     Route: 058
     Dates: start: 20100616, end: 20100628
  2. KARDEGIC [Suspect]
     Indication: PRODUCT USED FOR UNKNOWN INDICATION
     Dosage: 75MG PER DAY
     Route: 048
     Dates: start: 20080101
  3. ZOLOFT [Concomitant]
     Dosage: 50MG PER DAY
     Route: 048
  4. BIPRETERAX [Concomitant]
     Dosage: 1UNIT PER DAY
     Route: 065
  5. CALCIUM D3 [Concomitant]
     Dosage: 1000MG PER DAY
     Route: 065
  6. PRAMIPEXOLE DIHYDROCHLORIDE [Concomitant]
     Dosage: 2.1MG PER DAY
     Route: 065
  7. MODOPAR [Concomitant]
     Dosage: 1000MG PER DAY
     Route: 065

REACTIONS (2)
  - HAEMATOMA [None]
  - INCORRECT DRUG ADMINISTRATION DURATION [None]
